FAERS Safety Report 24540620 (Version 1)
Quarter: 2024Q4

REPORT INFORMATION
  Report Type: Spontaneous
  Country: IT (occurrence: IT)
  Receive Date: 20241023
  Receipt Date: 20241023
  Transmission Date: 20250114
  Serious: Yes (Hospitalization)
  Sender: CHIESI
  Company Number: IT-CHIESI-2024CHF06803

PATIENT
  Age: 35 Year
  Sex: Male

DRUGS (1)
  1. DEFERIPRONE [Suspect]
     Active Substance: DEFERIPRONE
     Indication: Blood iron increased
     Dosage: UNK
     Route: 065

REACTIONS (5)
  - Acute kidney injury [Recovered/Resolved]
  - Tubulointerstitial nephritis [Unknown]
  - Anuria [Recovered/Resolved]
  - Renal pain [Unknown]
  - Asthenia [Unknown]
